FAERS Safety Report 9354969 (Version 2)
Quarter: 2013Q3

REPORT INFORMATION
  Report Type: Spontaneous
  Country: US (occurrence: US)
  Receive Date: 20130619
  Receipt Date: 20130708
  Transmission Date: 20140515
  Serious: No
  Sender: FDA-Public Use
  Company Number: US-BIOGENIDEC-2013BI053853

PATIENT
  Age: 66 Year
  Sex: Male

DRUGS (1)
  1. TYSABRI [Suspect]
     Indication: MULTIPLE SCLEROSIS
     Route: 042
     Dates: start: 20120618

REACTIONS (5)
  - Urinary retention [Not Recovered/Not Resolved]
  - Insomnia [Recovered/Resolved]
  - Peroneal nerve palsy [Recovered/Resolved]
  - Mobility decreased [Unknown]
  - Fatigue [Recovered/Resolved]
